FAERS Safety Report 7917484-4 (Version None)
Quarter: 2011Q4

REPORT INFORMATION
  Report Type: 
  Country: None (occurrence: None)
  Receive Date: 20111116
  Receipt Date: 20111101
  Transmission Date: 20120403
  Serious: Yes (Hospitalization)
  Sender: FDA-Public Use
  Company Number: US-ROCHE-1013244

PATIENT
  Sex: Female
  Weight: 63.56 kg

DRUGS (3)
  1. ZOMETA [Concomitant]
     Dates: end: 20110919
  2. HERCEPTIN [Suspect]
     Indication: BREAST CANCER
     Dosage: LAST DOSE ON 09/SEP/2011
     Route: 042
     Dates: end: 20110919
  3. PERCOCET [Concomitant]
     Indication: PAIN

REACTIONS (2)
  - FALL [None]
  - FEMUR FRACTURE [None]
